FAERS Safety Report 4827219-X (Version None)
Quarter: 2005Q4

REPORT INFORMATION
  Report Type: 
  Country: None (occurrence: None)
  Receive Date: 20051114
  Receipt Date: 20050916
  Transmission Date: 20060501
  Serious: Yes (Other)
  Sender: FDA-Public Use
  Company Number: PHEH2005US10350

PATIENT
  Sex: Female

DRUGS (9)
  1. NEORAL [Suspect]
     Indication: RENAL TRANSPLANT
     Dosage: 225 MG, QD
     Route: 048
     Dates: start: 20010901
  2. NEORAL [Suspect]
     Dosage: 200 MG, QD
     Route: 048
     Dates: start: 20011001, end: 20011031
  3. NEORAL [Suspect]
     Dosage: 150 MG, QD
     Route: 048
     Dates: start: 20011101, end: 20011130
  4. NEORAL [Suspect]
     Dosage: 75 MG, QD
     Route: 048
     Dates: start: 20011201, end: 20020107
  5. LOPRESSOR [Concomitant]
  6. CELLCEPT [Concomitant]
  7. RAPAMUNE [Concomitant]
  8. BACTRIM [Concomitant]
  9. ARGININE [Concomitant]

REACTIONS (1)
  - BLOOD CREATINE PHOSPHOKINASE INCREASED [None]
